FAERS Safety Report 9061524 (Version 1)
Quarter: 2013Q1

REPORT INFORMATION
  Report Type: Spontaneous
  Country: US (occurrence: None)
  Receive Date: 20130118
  Receipt Date: 20130118
  Transmission Date: 20140127
  Serious: Yes (Death, Other)
  Sender: FDA-Public Use
  Company Number: 2013MA000378

PATIENT
  Age: 27 Year
  Sex: Male

DRUGS (4)
  1. KADIAN [Suspect]
     Indication: PRODUCT USED FOR UNKNOWN INDICATION
     Dosage: ; UNK; PO
     Route: 048
  2. CODEINE [Suspect]
     Dosage: ; UNK; PO
     Route: 048
  3. OXYCODONE HCL [Suspect]
     Dosage: ; UNK; PO
     Route: 048
  4. HEROIN [Suspect]
     Dosage: ; UNK; PO
     Route: 048

REACTIONS (1)
  - Drug abuse [None]
